FAERS Safety Report 5844826-6 (Version None)
Quarter: 2008Q3

REPORT INFORMATION
  Report Type: 
  Country: None (occurrence: None)
  Receive Date: 20080814
  Receipt Date: 20080805
  Transmission Date: 20090109
  Serious: Yes (Other)
  Sender: FDA-Public Use
  Company Number: US-ROCHE-576651

PATIENT
  Sex: Male
  Weight: 72.6 kg

DRUGS (4)
  1. XELODA [Suspect]
     Indication: COLORECTAL CANCER
     Dosage: DAILY FOR DAYS 1 TO 14
     Route: 048
     Dates: start: 20080701
  2. OXALIPLATIN [Suspect]
     Indication: COLORECTAL CANCER
     Dosage: FORM: INTRAVENOUS
     Route: 042
     Dates: start: 20080701
  3. DEXAMETHASONE TAB [Concomitant]
     Dosage: FORM: INTRAVENOUS
     Route: 042
     Dates: start: 20080701
  4. PALONOSETRON [Concomitant]
     Dosage: FORM: INTRAVENOUS
     Route: 042
     Dates: start: 20080701

REACTIONS (1)
  - CHOLECYSTITIS [None]
